FAERS Safety Report 9419740 (Version 1)
Quarter: 2013Q3

REPORT INFORMATION
  Report Type: Spontaneous
  Country: US (occurrence: None)
  Receive Date: 20130723
  Receipt Date: 20130723
  Transmission Date: 20140515
  Serious: Yes (Other)
  Sender: FDA-Public Use
  Company Number: 2013P1011914

PATIENT
  Age: 79 Year
  Sex: Female

DRUGS (2)
  1. INFUMORPH [Suspect]
     Indication: SPINAL PAIN
  2. MORPHINE [Suspect]
     Indication: SPINAL PAIN

REACTIONS (5)
  - Application site erythema [None]
  - Application site pain [None]
  - Pyrexia [None]
  - Implant site infection [None]
  - Enterobacter test positive [None]
